FAERS Safety Report 18470782 (Version 2)
Quarter: 2021Q1

REPORT INFORMATION
  Report Type: Spontaneous
  Country: US (occurrence: US)
  Receive Date: 20201105
  Receipt Date: 20210127
  Transmission Date: 20210419
  Serious: Yes (Other)
  Sender: FDA-Public Use
  Company Number: US-PURDUE-USA-2020-0159628

PATIENT

DRUGS (1)
  1. OXYCONTIN [Suspect]
     Active Substance: OXYCODONE HYDROCHLORIDE
     Indication: PAIN
     Dosage: UNK
     Route: 048
     Dates: start: 200804

REACTIONS (7)
  - Dependence [Unknown]
  - Physical disability [Unknown]
  - Mental disorder [Unknown]
  - Pain [Unknown]
  - Emotional distress [Unknown]
  - Anxiety disorder [Unknown]
  - Drug rehabilitation [Unknown]
